FAERS Safety Report 4635290-3 (Version None)
Quarter: 2005Q2

REPORT INFORMATION
  Report Type: 
  Country: None (occurrence: None)
  Receive Date: 20050414
  Receipt Date: 20050405
  Transmission Date: 20051028
  Serious: Yes (Hospitalization, Other)
  Sender: FDA-Public Use
  Company Number: US-AMGEN-US119404

PATIENT
  Age: 75 Year
  Sex: Male
  Weight: 84 kg

DRUGS (9)
  1. ARANESP [Suspect]
     Indication: MYELODYSPLASTIC SYNDROME
     Route: 058
     Dates: start: 20041109, end: 20050215
  2. AMOXICILLIN [Suspect]
     Dates: start: 20050207, end: 20050215
  3. OMEPRAZOLE [Concomitant]
  4. METOPROLOL TARTRATE [Concomitant]
  5. LISINOPRIL [Concomitant]
  6. LEVOTHYROXINE [Concomitant]
  7. INSULIN [Concomitant]
  8. HYDROCHLOROTHIAZIDE [Concomitant]
  9. TYLENOL (CAPLET) [Concomitant]

REACTIONS (7)
  - ANAEMIA [None]
  - ANISOCYTOSIS [None]
  - APLASIA PURE RED CELL [None]
  - HAEMOGLOBIN DECREASED [None]
  - MICROCYTOSIS [None]
  - PARVOVIRUS B19 SEROLOGY POSITIVE [None]
  - UPPER RESPIRATORY TRACT INFECTION [None]
